FAERS Safety Report 8415021-1 (Version None)
Quarter: 2012Q2

REPORT INFORMATION
  Report Type: 
  Country: None (occurrence: None)
  Receive Date: 20120606
  Receipt Date: 20120525
  Transmission Date: 20120825
  Serious: Yes (Other)
  Sender: FDA-Public Use
  Company Number: CA-JNJFOC-20120519553

PATIENT
  Sex: Male
  Weight: 71.7 kg

DRUGS (4)
  1. METHOTREXATE [Concomitant]
     Route: 058
  2. REMICADE [Suspect]
     Indication: RHEUMATOID ARTHRITIS
     Route: 042
     Dates: start: 20120220
  3. NAPROXEN [Concomitant]
     Route: 065
  4. PREDNISONE [Concomitant]
     Route: 048

REACTIONS (1)
  - UPPER EXTREMITY MASS [None]
